FAERS Safety Report 7720199-9 (Version None)
Quarter: 2011Q3

REPORT INFORMATION
  Report Type: 
  Country: None (occurrence: None)
  Receive Date: 20110826
  Receipt Date: 20110826
  Transmission Date: 20111222
  Serious: Yes (Other)
  Sender: FDA-Public Use
  Company Number: None

PATIENT
  Age: 60 Year
  Sex: Female
  Weight: 58.9676 kg

DRUGS (2)
  1. OXYCONTIN [Suspect]
     Dosage: 10 MG 3 TIMES/DAY 3 TIMES A DAY ORAL
     Route: 048
  2. MS CONTIN [Suspect]

REACTIONS (3)
  - DRUG EFFECT DECREASED [None]
  - PSYCHOTIC DISORDER [None]
  - ANGER [None]
